FAERS Safety Report 16675146 (Version 2)
Quarter: 2019Q3

REPORT INFORMATION
  Report Type: Spontaneous
  Country: US (occurrence: US)
  Receive Date: 20190806
  Receipt Date: 20190924
  Transmission Date: 20191004
  Serious: No
  Sender: FDA-Public Use
  Company Number: US-PFIZER INC-2018333028

PATIENT
  Sex: Female
  Weight: 42.18 kg

DRUGS (2)
  1. GENOTROPIN [Suspect]
     Active Substance: SOMATROPIN
     Indication: TURNER^S SYNDROME
     Dosage: 2.8 MG, CYCLIC (6 DAYS A WEEK)
     Route: 058
  2. GENOTROPIN [Suspect]
     Active Substance: SOMATROPIN
     Indication: BODY HEIGHT BELOW NORMAL
     Dosage: 2.4 MG, CYCLIC (6 DAYS A WEEK)
     Route: 058

REACTIONS (3)
  - Wrong technique in device usage process [Unknown]
  - Hypertension [Unknown]
  - Injection site pain [Unknown]

NARRATIVE: CASE EVENT DATE: 2019
